FAERS Safety Report 9574998 (Version 2)
Quarter: 2013Q4

REPORT INFORMATION
  Report Type: Spontaneous
  Country: JP (occurrence: JP)
  Receive Date: 20131001
  Receipt Date: 20131223
  Transmission Date: 20140711
  Serious: Yes (Death)
  Sender: FDA-Public Use
  Company Number: JP-COVIDIEN/TYCO HEALTHCARE/MALLINCKRODT-T201304481

PATIENT
  Age: 54 Year
  Sex: Male
  Weight: 48.7 kg

DRUGS (10)
  1. METHADONE [Suspect]
     Indication: CANCER PAIN
     Dosage: 15 MG, (45 MG DAILY DOSE)
     Route: 048
     Dates: start: 20130608, end: 20130614
  2. METHADONE [Suspect]
     Dosage: 20 MG, (60 MG DAILY DOSE)
     Route: 048
     Dates: start: 20130615, end: 20130617
  3. METHADONE [Suspect]
     Dosage: 15 MG, (45 MG DAILY DOSE)
     Route: 048
     Dates: start: 20130618, end: 20130903
  4. METHADONE [Suspect]
     Dosage: 20 MG (60 MG DAILY DOSE)
     Route: 048
     Dates: start: 20130904, end: 20130906
  5. OXINORM                            /00045603/ [Concomitant]
     Dosage: 30 MG, PRN
     Route: 048
     Dates: start: 20130608
  6. ZYPREXA [Concomitant]
     Dosage: 2.5 MG, UNK
     Route: 048
     Dates: end: 20130609
  7. ZYPREXA [Concomitant]
     Dosage: 5 MG, UNK
     Route: 048
     Dates: start: 20130610, end: 20130906
  8. MAGMITT [Concomitant]
     Dosage: 1980 MG, UNK
     Route: 048
     Dates: end: 20130906
  9. SENNOSIDE                          /00571901/ [Concomitant]
     Dosage: 24 MG, UNK
     Route: 048
     Dates: end: 20130906
  10. CALONAL [Concomitant]
     Dosage: 1200 MG, UNK
     Route: 048
     Dates: end: 20130906

REACTIONS (3)
  - Lung neoplasm malignant [Fatal]
  - Nausea [Recovering/Resolving]
  - Somnolence [Recovering/Resolving]
